FAERS Safety Report 5908445-5 (Version None)
Quarter: 2008Q3

REPORT INFORMATION
  Report Type: 
  Country: None (occurrence: None)
  Receive Date: 20080930
  Receipt Date: 20080918
  Transmission Date: 20090109
  Serious: Yes (Hospitalization)
  Sender: FDA-Public Use
  Company Number: 2008BI024642

PATIENT
  Age: 40 Year
  Sex: Male
  Weight: 92.5338 kg

DRUGS (16)
  1. TYSABRI [Suspect]
     Indication: CROHN'S DISEASE
     Dosage: 300 MG; QM; IV
     Route: 042
     Dates: start: 20080707, end: 20080707
  2. PREDNISONE [Concomitant]
  3. WELCHOL [Concomitant]
  4. IMODIUM [Concomitant]
  5. LORTAB [Concomitant]
  6. ZOLOFT [Concomitant]
  7. VITRON C [Concomitant]
  8. VITAMIN D [Concomitant]
  9. CALCIUM [Concomitant]
  10. FOSAMAX [Concomitant]
  11. AMBIEN [Concomitant]
  12. GAS X [Concomitant]
  13. INFLIXIMAB [Concomitant]
  14. ADALIUMAMB [Concomitant]
  15. AZATHIOPRINE [Concomitant]
  16. BUDESONIDE [Concomitant]

REACTIONS (5)
  - ABDOMINAL PAIN [None]
  - FREQUENT BOWEL MOVEMENTS [None]
  - INFECTION [None]
  - PYREXIA [None]
  - RENAL MASS [None]
